FAERS Safety Report 17822545 (Version 1)
Quarter: 2020Q2

REPORT INFORMATION
  Report Type: Spontaneous
  Country: NL (occurrence: NL)
  Receive Date: 20200526
  Receipt Date: 20200526
  Transmission Date: 20200714
  Serious: Yes (Other)
  Sender: FDA-Public Use
  Company Number: NL-AUROBINDO-AUR-APL-2020-025758

PATIENT
  Age: 75 Year
  Sex: Female
  Weight: 62 kg

DRUGS (6)
  1. METOPROLOLSUCCINAAT [Concomitant]
     Active Substance: METOPROLOL SUCCINATE
     Indication: PRODUCT USED FOR UNKNOWN INDICATION
     Dosage: 100 MILLIGRAM
     Route: 065
  2. MAAGZUURTABLETTEN PANTOPRAZOL [Concomitant]
     Indication: PRODUCT USED FOR UNKNOWN INDICATION
     Dosage: 40 MILLIGRAM
     Route: 065
  3. LISINOPRIL. [Concomitant]
     Active Substance: LISINOPRIL
     Indication: PRODUCT USED FOR UNKNOWN INDICATION
     Dosage: 20 MILLIGRAM
     Route: 065
  4. OXYCODON 10 MG MODIFIED RELEASE TABLET [Suspect]
     Active Substance: OXYCODONE HYDROCHLORIDE
     Indication: PAIN
     Dosage: 10 MILLIGRAM, TWO TIMES A DAY
     Route: 065
     Dates: start: 20200316, end: 20200325
  5. LIXIANA [Concomitant]
     Active Substance: EDOXABAN TOSYLATE
     Indication: PRODUCT USED FOR UNKNOWN INDICATION
     Dosage: 60 MILLIGRAM
     Route: 065
  6. PREGABALIN 150 MG CAPSULES, HARD [Suspect]
     Active Substance: PREGABALIN
     Indication: PAIN
     Dosage: 2X PER DAG 1 CAPSULE
     Route: 065
     Dates: start: 20200227, end: 20200325

REACTIONS (6)
  - Nausea [Recovered/Resolved]
  - Respiratory distress [Recovered/Resolved]
  - Decreased appetite [Recovered/Resolved]
  - Retching [Recovered/Resolved]
  - Joint swelling [Recovered/Resolved]
  - Sleep attacks [Recovered/Resolved]

NARRATIVE: CASE EVENT DATE: 20200325
